FAERS Safety Report 4527292-2 (Version None)
Quarter: 2004Q4

REPORT INFORMATION
  Report Type: 
  Country: None (occurrence: None)
  Receive Date: 20041215
  Receipt Date: 20041203
  Transmission Date: 20050328
  Serious: Yes (Other)
  Sender: FDA-Public Use
  Company Number: US-JNJFOC-20040809891

PATIENT
  Sex: Female
  Weight: 68.04 kg

DRUGS (28)
  1. REMICADE [Suspect]
     Route: 042
  2. REMICADE [Suspect]
     Route: 042
  3. REMICADE [Suspect]
     Route: 042
  4. REMICADE [Suspect]
     Route: 042
  5. REMICADE [Suspect]
     Route: 042
  6. REMICADE [Suspect]
     Route: 042
  7. REMICADE [Suspect]
     Indication: RHEUMATOID ARTHRITIS
     Route: 042
  8. VASERETIC [Concomitant]
     Dosage: EVERY DAY.
  9. VASERETIC [Concomitant]
  10. VASERETIC [Concomitant]
     Dosage: EVERY DAY.
  11. METHOTREXATE [Concomitant]
     Dosage: VARRIED WITH 7.5 MG PER WEEK
     Route: 049
  12. METHOTREXATE [Concomitant]
     Dosage: VARRIED WITH 10 MG PER WEEK
     Route: 049
  13. METHOTREXATE [Concomitant]
     Route: 049
  14. METHOTREXATE [Concomitant]
     Route: 049
  15. METHOTREXATE [Concomitant]
     Route: 049
  16. METHOTREXATE [Concomitant]
     Route: 049
  17. METHOTREXATE [Concomitant]
     Route: 049
  18. FOLIC ACID [Concomitant]
  19. FOLIC ACID [Concomitant]
  20. LEUCOVORIN [Concomitant]
  21. LEUCOVORIN [Concomitant]
  22. LEUCOVORIN [Concomitant]
  23. LEUCOVORIN [Concomitant]
  24. ZOCOR [Concomitant]
  25. ZOCOR [Concomitant]
  26. ZOCOR [Concomitant]
  27. ZOCOR [Concomitant]
  28. OGEN [Concomitant]
     Dosage: 1/2

REACTIONS (7)
  - ALOPECIA [None]
  - HAEMATOCRIT DECREASED [None]
  - LIVER FUNCTION TEST ABNORMAL [None]
  - LYMPHOMA [None]
  - MEAN CELL HAEMOGLOBIN DECREASED [None]
  - PLATELET COUNT DECREASED [None]
  - RED BLOOD CELL COUNT DECREASED [None]
